FAERS Safety Report 25404445 (Version 1)
Quarter: 2025Q2

REPORT INFORMATION
  Report Type: Spontaneous
  Country: US (occurrence: US)
  Receive Date: 20250606
  Receipt Date: 20250606
  Transmission Date: 20250716
  Serious: No
  Sender: IPSEN BIOPHARMACEUTICALS, INC.
  Company Number: US-IPSEN Group, Research and Development-2025-12770

PATIENT
  Sex: Female
  Weight: 63.5 kg

DRUGS (3)
  1. BYLVAY [Suspect]
     Active Substance: ODEVIXIBAT
     Indication: Progressive familial intrahepatic cholestasis
     Route: 048
  2. IRON [Concomitant]
     Active Substance: IRON
  3. URSODIOL [Concomitant]
     Active Substance: URSODIOL

REACTIONS (4)
  - Pruritus [Unknown]
  - Scratch [Unknown]
  - Urticaria [Unknown]
  - Treatment noncompliance [Unknown]
